FAERS Safety Report 19978662 (Version 1)
Quarter: 2021Q4

REPORT INFORMATION
  Report Type: Spontaneous
  Country: US (occurrence: US)
  Receive Date: 20211019
  Receipt Date: 20211019
  Transmission Date: 20220304
  Serious: Yes (Hospitalization)
  Sender: FDA-Public Use
  Company Number: None

PATIENT
  Sex: Female

DRUGS (1)
  1. TOBRAMYCIN [Suspect]
     Active Substance: TOBRAMYCIN
     Indication: Bronchiectasis
     Dosage: ?300 MG/5ML??INHALE 5 ML VIA NEBULIZER TWO TIMES A DAY FOR 28 DAYS ON, 28 DAYS OFF
     Route: 055
     Dates: start: 20180515

REACTIONS (1)
  - Hospitalisation [None]
